FAERS Safety Report 14765281 (Version 1)
Quarter: 2018Q2

REPORT INFORMATION
  Report Type: Spontaneous
  Country: GB (occurrence: GB)
  Receive Date: 20180416
  Receipt Date: 20180416
  Transmission Date: 20180711
  Serious: Yes (Other)
  Sender: FDA-Public Use
  Company Number: GB-TEVA-2018-GB-882367

PATIENT
  Sex: Male

DRUGS (3)
  1. TEVA LAMOTRIGINE [Suspect]
     Active Substance: LAMOTRIGINE
     Dosage: 400 MILLIGRAM DAILY; 2X100MG AM AND 2X100MG PM
     Route: 065
  2. TEVA LAMOTRIGINE [Suspect]
     Active Substance: LAMOTRIGINE
     Dosage: 400 MILLIGRAM DAILY;
     Route: 065
  3. KEPPRA [Suspect]
     Active Substance: LEVETIRACETAM
     Route: 065

REACTIONS (5)
  - Feeling abnormal [Unknown]
  - Drug ineffective [Unknown]
  - Therapy change [Unknown]
  - Seizure [Unknown]
  - Memory impairment [Unknown]
